FAERS Safety Report 13301969 (Version 1)
Quarter: 2017Q1

REPORT INFORMATION
  Report Type: Spontaneous
  Country: US (occurrence: US)
  Receive Date: 20170307
  Receipt Date: 20170307
  Transmission Date: 20170428
  Serious: No
  Sender: FDA-Public Use
  Company Number: None

PATIENT
  Age: 56 Year
  Sex: Female
  Weight: 64.35 kg

DRUGS (2)
  1. METHYLPRED4 MGMETHYLPREDNISOLONE [Suspect]
     Active Substance: METHYLPREDNISOLONE
     Indication: MUSCULOSKELETAL PAIN
     Dosage: QUANTITY:21 TABLET(S);OTHER FREQUENCY:COMPLICATED;?
     Route: 048
     Dates: start: 20170303, end: 20170303
  2. METHYLPRED4 MGMETHYLPREDNISOLONE [Suspect]
     Active Substance: METHYLPREDNISOLONE
     Indication: ROTATOR CUFF SYNDROME
     Dosage: QUANTITY:21 TABLET(S);OTHER FREQUENCY:COMPLICATED;?
     Route: 048
     Dates: start: 20170303, end: 20170303

REACTIONS (4)
  - Hyperhidrosis [None]
  - Feeling hot [None]
  - Erythema [None]
  - Swelling face [None]

NARRATIVE: CASE EVENT DATE: 20170303
